FAERS Safety Report 9035839 (Version 1)
Quarter: 2013Q1

REPORT INFORMATION
  Report Type: Report from Study
  Country: US (occurrence: US)
  Receive Date: 20130129
  Receipt Date: 20130129
  Transmission Date: 20140127
  Serious: No
  Sender: FDA-Public Use
  Company Number: US-ABBOTT-12P-163-0927928-00

PATIENT
  Age: 34 Year
  Sex: Female
  Weight: 50.85 kg

DRUGS (7)
  1. HUMIRA 40 MG/0.8 ML PEN [Suspect]
     Indication: CROHN^S DISEASE
     Dates: start: 20120412, end: 20120412
  2. ASACOL [Concomitant]
     Indication: CROHN^S DISEASE
  3. MULTIVITAMIN [Concomitant]
     Indication: PRODUCT USED FOR UNKNOWN INDICATION
  4. IRON [Concomitant]
     Indication: PRODUCT USED FOR UNKNOWN INDICATION
  5. PRILOSEC [Concomitant]
     Indication: GASTRITIS
  6. ZOLOFT [Concomitant]
     Indication: ANXIETY
  7. AMBIEN [Concomitant]
     Indication: INSOMNIA

REACTIONS (1)
  - Urine odour abnormal [Recovered/Resolved]
